FAERS Safety Report 24547765 (Version 1)
Quarter: 2024Q4

REPORT INFORMATION
  Report Type: Report from Study
  Country: US (occurrence: US)
  Receive Date: 20241025
  Receipt Date: 20241025
  Transmission Date: 20250115
  Serious: Yes (Hospitalization)
  Sender: ROCHE
  Company Number: US-ROCHE-10000112511

PATIENT
  Age: 41 Year
  Sex: Female

DRUGS (2)
  1. XOLAIR [Suspect]
     Active Substance: OMALIZUMAB
     Indication: Food allergy
     Route: 058
  2. XOLAIR [Suspect]
     Active Substance: OMALIZUMAB

REACTIONS (4)
  - Impaired gastric emptying [Not Recovered/Not Resolved]
  - Anaphylactic reaction [Not Recovered/Not Resolved]
  - Deep vein thrombosis [Recovered/Resolved]
  - Pruritus [Recovered/Resolved]
